FAERS Safety Report 24283203 (Version 2)
Quarter: 2024Q4

REPORT INFORMATION
  Report Type: Spontaneous
  Country: AZ (occurrence: AZ)
  Receive Date: 20240904
  Receipt Date: 20241003
  Transmission Date: 20250114
  Serious: Yes (Death)
  Sender: NOVO NORDISK
  Company Number: AZ-NOVOPROD-1277912

PATIENT

DRUGS (5)
  1. LEVEMIR [Suspect]
     Active Substance: INSULIN DETEMIR
     Indication: Gestational diabetes
     Dosage: 25 IU, BID
     Route: 064
  2. LEVEMIR [Suspect]
     Active Substance: INSULIN DETEMIR
     Dosage: 25 IU, QD
     Route: 064
  3. LEVEMIR [Suspect]
     Active Substance: INSULIN DETEMIR
     Dosage: 22 IU, QD(12+10 UNITS)
     Route: 064
  4. NOVORAPID [Suspect]
     Active Substance: INSULIN ASPART
     Indication: Gestational diabetes
     Dosage: 1 IU, TID
     Route: 064
  5. NOVORAPID [Suspect]
     Active Substance: INSULIN ASPART
     Dosage: 28 IU, QD (8+10+10 )
     Route: 064

REACTIONS (2)
  - Asphyxia [Fatal]
  - Foetal exposure during pregnancy [Unknown]
